FAERS Safety Report 8342042-X (Version None)
Quarter: 2012Q2

REPORT INFORMATION
  Report Type: 
  Country: None (occurrence: None)
  Receive Date: 20120507
  Receipt Date: 20120502
  Transmission Date: 20120825
  Serious: Yes (Death, Life-Threatening, Other)
  Sender: FDA-Public Use
  Company Number: IL-CELGENEUS-082-C5013-10122130

PATIENT
  Sex: Male
  Weight: 59 kg

DRUGS (5)
  1. BISOPROLOL FUMARATE [Concomitant]
     Dosage: 2.5 MILLIGRAM
     Route: 065
  2. HYDROCHLOROTHIAZIDE [Concomitant]
     Dosage: 12.5 MILLIGRAM
     Route: 065
  3. LENALIDOMIDE [Suspect]
     Dosage: 2.5 MILLIGRAM
     Route: 048
     Dates: start: 20101219, end: 20101219
  4. LERCANIDIPINE [Concomitant]
     Dosage: 10 MILLIGRAM
     Route: 065
  5. LENALIDOMIDE [Suspect]
     Indication: CHRONIC LYMPHOCYTIC LEUKAEMIA
     Dosage: 2.5 MILLIGRAM
     Route: 048
     Dates: start: 20101121

REACTIONS (3)
  - LOBAR PNEUMONIA [None]
  - MULTI-ORGAN FAILURE [None]
  - SEPSIS SYNDROME [None]
